FAERS Safety Report 4706573-3 (Version None)
Quarter: 2005Q3

REPORT INFORMATION
  Report Type: 
  Country: None (occurrence: None)
  Receive Date: 20050705
  Receipt Date: 20050406
  Transmission Date: 20060218
  Serious: Yes (Death)
  Sender: FDA-Public Use
  Company Number: 200511026JP

PATIENT
  Age: 72 Year
  Sex: Male
  Weight: 51.2 kg

DRUGS (2)
  1. TAXOTERE [Suspect]
     Indication: NEOPLASM MALIGNANT
     Route: 041
     Dates: start: 20040405, end: 20040419
  2. RADIATION THERAPY [Suspect]
     Indication: NEOPLASM MALIGNANT
     Dates: start: 20040401, end: 20040524

REACTIONS (6)
  - CANDIDIASIS [None]
  - DISSEMINATED INTRAVASCULAR COAGULATION [None]
  - DRUG RESISTANCE [None]
  - INTERSTITIAL LUNG DISEASE [None]
  - PNEUMOTHORAX [None]
  - STAPHYLOCOCCAL INFECTION [None]
